FAERS Safety Report 8044603-4 (Version None)
Quarter: 2012Q1

REPORT INFORMATION
  Report Type: 
  Country: None (occurrence: None)
  Receive Date: 20120113
  Receipt Date: 20120113
  Transmission Date: 20120608
  Serious: Yes (Other)
  Sender: FDA-Public Use
  Company Number: None

PATIENT
  Age: 38 Year
  Sex: Female
  Weight: 61.234 kg

DRUGS (2)
  1. RIBAVIRIN [Concomitant]
     Indication: HEPATITIS C
     Dosage: 4 PILLS PER DAY
     Route: 048
     Dates: start: 20101002, end: 20110430
  2. INTERFERON [Suspect]
     Indication: HEPATITIS C
     Dosage: ONE INJECTION
     Route: 062
     Dates: start: 20101002, end: 20110430

REACTIONS (9)
  - LIBIDO DECREASED [None]
  - PERSONALITY CHANGE [None]
  - INFLUENZA [None]
  - ANGER [None]
  - MEMORY IMPAIRMENT [None]
  - FATIGUE [None]
  - DEPRESSION [None]
  - FEELING ABNORMAL [None]
  - PAIN [None]
